FAERS Safety Report 22352272 (Version 2)
Quarter: 2023Q2

REPORT INFORMATION
  Report Type: Spontaneous
  Country: AT (occurrence: AT)
  Receive Date: 20230522
  Receipt Date: 20230614
  Transmission Date: 20230721
  Serious: Yes (Death)
  Sender: FDA-Public Use
  Company Number: AT-SERVIER-S23005194

PATIENT
  Age: 64 Year
  Sex: Female

DRUGS (2)
  1. LONSURF [Suspect]
     Active Substance: TIPIRACIL HYDROCHLORIDE\TRIFLURIDINE
     Indication: Pancreatic carcinoma metastatic
     Dosage: 35 MG/M2, BID, ON DAYS 1-5 AND 8-12 OF A 28-DAY-CYCLE
     Route: 048
     Dates: start: 202212, end: 2023
  2. LONSURF [Suspect]
     Active Substance: TIPIRACIL HYDROCHLORIDE\TRIFLURIDINE
     Indication: Off label use
     Route: 048

REACTIONS (3)
  - Death [Fatal]
  - Off label use [Recovered/Resolved]
  - Drug ineffective [Recovered/Resolved]

NARRATIVE: CASE EVENT DATE: 20221201
